FAERS Safety Report 4880766-7 (Version None)
Quarter: 2006Q1

REPORT INFORMATION
  Report Type: 
  Country: None (occurrence: None)
  Receive Date: 20060111
  Receipt Date: 20051209
  Transmission Date: 20060701
  Serious: No
  Sender: FDA-Public Use
  Company Number: 2005S1000267

PATIENT
  Age: 65 Year

DRUGS (1)
  1. CUBICIN [Suspect]
     Dosage: 350 MG;Q24H;IV
     Route: 042
     Dates: start: 20051203

REACTIONS (1)
  - INJECTION SITE EXTRAVASATION [None]
